FAERS Safety Report 10015704 (Version 2)
Quarter: 2014Q2

REPORT INFORMATION
  Report Type: Spontaneous
  Country: US (occurrence: US)
  Receive Date: 20140317
  Receipt Date: 20140404
  Transmission Date: 20141212
  Serious: Yes (Other)
  Sender: FDA-Public Use
  Company Number: US-PFIZER INC-2014076607

PATIENT
  Age: 81 Year
  Sex: Male
  Weight: 75.74 kg

DRUGS (1)
  1. OXYCODONE HYDROCHLORIDE [Suspect]
     Indication: PROCEDURAL PAIN
     Dosage: EVERY 6 HOURS
     Dates: end: 2010

REACTIONS (1)
  - Drug dependence [Unknown]
